FAERS Safety Report 4888145-3 (Version None)
Quarter: 2006Q1

REPORT INFORMATION
  Report Type: 
  Country: None (occurrence: None)
  Receive Date: 20060119
  Receipt Date: 20060109
  Transmission Date: 20060701
  Serious: Yes (Other)
  Sender: FDA-Public Use
  Company Number: 2006005305

PATIENT
  Age: 64 Year
  Sex: Female
  Weight: 99.7913 kg

DRUGS (3)
  1. LIPITOR [Suspect]
     Indication: BLOOD CHOLESTEROL INCREASED
  2. PLAVIX [Suspect]
     Indication: ILL-DEFINED DISORDER
     Dates: start: 20050101, end: 20050101
  3. ZIAC [Suspect]
     Indication: HEART RATE DECREASED
     Dates: start: 20050101

REACTIONS (7)
  - ARTHRITIS [None]
  - DIZZINESS [None]
  - HEART RATE DECREASED [None]
  - HYPERSENSITIVITY [None]
  - HYPERSOMNIA [None]
  - LIVER FUNCTION TEST ABNORMAL [None]
  - MYALGIA [None]
